FAERS Safety Report 4986522-3 (Version None)
Quarter: 2006Q2

REPORT INFORMATION
  Report Type: 
  Country: None (occurrence: None)
  Receive Date: 20060428
  Receipt Date: 20060426
  Transmission Date: 20061013
  Serious: Yes (Hospitalization)
  Sender: FDA-Public Use
  Company Number: IT-ROCHE-445674

PATIENT
  Age: 70 Year
  Sex: Male

DRUGS (3)
  1. TICLID [Suspect]
     Indication: THROMBOSIS PROPHYLAXIS
     Route: 048
     Dates: end: 20060218
  2. TRENTAL [Suspect]
     Indication: DRUG USE FOR UNKNOWN INDICATION
     Route: 065
     Dates: end: 20060218
  3. VASERETIC [Concomitant]
     Route: 048

REACTIONS (4)
  - ANAEMIA [None]
  - GASTRIC ULCER HAEMORRHAGE [None]
  - MELAENA [None]
  - SYNCOPE [None]
